FAERS Safety Report 9521809 (Version 1)
Quarter: 2013Q3

REPORT INFORMATION
  Report Type: Spontaneous
  Country: US (occurrence: None)
  Receive Date: 20130911
  Receipt Date: 20130911
  Transmission Date: 20140515
  Serious: No
  Sender: FDA-Public Use
  Company Number: AEUSA201300169

PATIENT
  Age: 76 Year
  Sex: Female
  Weight: 81.1 kg

DRUGS (15)
  1. GAMUNEX-C [Suspect]
     Indication: SECONDARY IMMUNODEFICIENCY
     Route: 042
     Dates: start: 2011
  2. GAMUNEX-C [Suspect]
     Indication: NEOPLASM
     Route: 042
     Dates: start: 2011
  3. LATANOPROST [Concomitant]
  4. ALLOPURINOL [Concomitant]
  5. PANTOPRAZOLE [Concomitant]
  6. ZETIA [Concomitant]
  7. SLO-NIACIN [Concomitant]
  8. ACYCLOVIR /00587301/ [Concomitant]
  9. FLONASE [Concomitant]
  10. FLOVENT [Concomitant]
  11. VITAMIN D3 [Concomitant]
  12. TRAMADOL [Concomitant]
  13. BENADRYL /01563701/ [Concomitant]
  14. TYLENOL /00020001/ [Concomitant]
  15. GAMUNEX [Concomitant]

REACTIONS (6)
  - Headache [None]
  - Pain [None]
  - Neck pain [None]
  - Pyrexia [None]
  - Pain of skin [None]
  - Infusion related reaction [None]
